FAERS Safety Report 9583332 (Version 2)
Quarter: 2013Q4

REPORT INFORMATION
  Report Type: Spontaneous
  Country: US (occurrence: US)
  Receive Date: 20131002
  Receipt Date: 20131002
  Transmission Date: 20140711
  Serious: No
  Sender: FDA-Public Use
  Company Number: US-AMGEN-USASP2013044879

PATIENT
  Age: 46 Year
  Sex: Female
  Weight: 81.63 kg

DRUGS (3)
  1. ENBREL [Suspect]
     Indication: PSORIASIS
     Dosage: 50 MG, QWK
     Route: 058
     Dates: start: 20090615, end: 201103
  2. SORIATANE [Suspect]
     Dosage: 25 MG, EVERY OTHER DAY
     Route: 048
     Dates: start: 20061206, end: 20110601
  3. CYCLOSPORINE [Suspect]
     Dosage: 100 MG, QD
     Route: 048
     Dates: start: 20061206, end: 20110601

REACTIONS (2)
  - Drug ineffective [Unknown]
  - Hepatic enzyme increased [Recovered/Resolved]
